FAERS Safety Report 12914646 (Version 1)
Quarter: 2016Q4

REPORT INFORMATION
  Report Type: Spontaneous
  Country: US (occurrence: US)
  Receive Date: 20161106
  Receipt Date: 20161106
  Transmission Date: 20170207
  Serious: No
  Sender: FDA-Public Use
  Company Number: US-RELYPSA-RLY2016003262

PATIENT
  Sex: Female

DRUGS (2)
  1. VELTASSA [Suspect]
     Active Substance: PATIROMER
     Indication: BLOOD POTASSIUM INCREASED
     Dosage: UNKNOWN
     Route: 065
     Dates: end: 201608
  2. VELTASSA [Suspect]
     Active Substance: PATIROMER
     Dosage: 2 PACKETS DAILY
     Route: 065
     Dates: start: 201608

REACTIONS (1)
  - Blood potassium increased [Recovered/Resolved]
